FAERS Safety Report 6461723-6 (Version None)
Quarter: 2009Q4

REPORT INFORMATION
  Report Type: 
  Country: None (occurrence: None)
  Receive Date: 20091130
  Receipt Date: 20091124
  Transmission Date: 20100525
  Serious: Yes (Other)
  Sender: FDA-Public Use
  Company Number: TR-BRISTOL-MYERS SQUIBB COMPANY-14858229

PATIENT
  Age: 45 Year
  Sex: Female

DRUGS (4)
  1. TRAZODONE HCL [Suspect]
  2. AMOXICILLIN [Suspect]
  3. FLUOXETINE [Suspect]
  4. VENLAFAXINE HCL [Suspect]
     Dosage: INCREASED TO 75MG/D

REACTIONS (2)
  - DISEASE RECURRENCE [None]
  - THROMBOCYTOPENIA [None]
